FAERS Safety Report 6967260-4 (Version None)
Quarter: 2010Q3

REPORT INFORMATION
  Report Type: 
  Country: None (occurrence: None)
  Receive Date: 20100907
  Receipt Date: 20100823
  Transmission Date: 20110219
  Serious: Yes (Life-Threatening)
  Sender: FDA-Public Use
  Company Number: JP-ASTRAZENECA-2009AP03131

PATIENT
  Age: 25766 Day
  Sex: Male
  Weight: 70 kg

DRUGS (17)
  1. DIPRIVAN [Suspect]
     Indication: SEDATION
     Route: 042
     Dates: start: 20090429
  2. DIPRIVAN [Suspect]
     Route: 042
     Dates: start: 20090429, end: 20090430
  3. RASENAZOLIN [Concomitant]
     Indication: ENDOCARDITIS
     Dosage: NUMBER OF DIVIDED DOSES UNKNOWN
     Route: 042
     Dates: start: 20090417
  4. MEROPENEM [Concomitant]
     Indication: ENDOCARDITIS
     Dosage: NUMBER OF DIVIDED DOSES UNKNOWN
     Route: 041
     Dates: start: 20090430
  5. VANCOMYCIN [Concomitant]
     Indication: ENDOCARDITIS
     Dosage: NUMBER OF DIVIDED DOSES UNKNOWN
     Route: 041
     Dates: start: 20090430
  6. OMEPRAL INJECTION [Concomitant]
     Dosage: DOSE UNKNOWN
     Route: 041
  7. ELASPOL [Concomitant]
     Dosage: DOSE UNKNOWN
     Route: 041
  8. BUMINATE [Concomitant]
     Dosage: DOSE UNKNOWN
     Route: 041
  9. ALBUMINAR [Concomitant]
     Dosage: DOSE UNKNOWN
     Route: 041
  10. INTRALIPOS10% [Concomitant]
     Dosage: DOSE UNKNOWN
     Route: 041
  11. WARFARIN SODIUM [Concomitant]
     Indication: ATRIAL FIBRILLATION
     Dosage: STARTED BEFORE 25-MAR-2009
     Route: 048
  12. LECICARBON [Concomitant]
     Indication: CONSTIPATION
     Dosage: AS REQUIRED STARTED BEFORE MAR-2009
     Route: 054
  13. KETOPROFEN [Concomitant]
     Indication: BACK PAIN
     Dosage: AS REQUIRED STARTED BEFORE MAR-2009
     Route: 062
  14. LAC-B [Concomitant]
     Indication: DIARRHOEA
     Route: 048
     Dates: start: 20090421, end: 20090429
  15. OMEPRAL TABLETS [Concomitant]
     Indication: REFLUX OESOPHAGITIS
     Route: 048
     Dates: start: 20090422, end: 20090429
  16. LASIX [Concomitant]
     Indication: OEDEMA DUE TO RENAL DISEASE
     Route: 048
     Dates: start: 20090423
  17. GASCON [Concomitant]
     Indication: GASTRITIS
     Route: 048
     Dates: start: 20090429

REACTIONS (2)
  - ELECTROCARDIOGRAM QT PROLONGED [None]
  - TORSADE DE POINTES [None]
